FAERS Safety Report 18435826 (Version 2)
Quarter: 2020Q4

REPORT INFORMATION
  Report Type: Report from Study
  Country: CA (occurrence: CA)
  Receive Date: 20201028
  Receipt Date: 20201029
  Transmission Date: 20210114
  Serious: Yes (Hospitalization)
  Sender: FDA-Public Use
  Company Number: CA-ROCHE-2357116

PATIENT
  Age: 33 Year
  Sex: Female
  Weight: 104.3 kg

DRUGS (17)
  1. ACETAMINOPHEN. [Concomitant]
     Active Substance: ACETAMINOPHEN
     Indication: HEADACHE
     Dosage: SUBSEQUENT DOSES RECEIVED ON 23/JAN/2012, 05/JUL/2012, 19/JUL/2012, 03/JAN/2013, 27/MAY/2013, 10/JUN
     Dates: start: 20120109
  2. IBUPROFEN. [Concomitant]
     Active Substance: IBUPROFEN
     Indication: HEADACHE
     Dates: start: 20150504
  3. MIRABEGRON [Concomitant]
     Active Substance: MIRABEGRON
     Indication: INCONTINENCE
     Dates: start: 20190225
  4. RESTORALAX [Concomitant]
     Active Substance: POLYETHYLENE GLYCOL 3350
     Indication: CONSTIPATION
     Dates: start: 20190722, end: 20190916
  5. OCRELIZUMAB. [Suspect]
     Active Substance: OCRELIZUMAB
     Indication: PRIMARY PROGRESSIVE MULTIPLE SCLEROSIS
     Dosage: TWO IV INFUSIONS OF OCRELIZUMAB 300MG FOR CYCLE 1 AND SINGLE IV INFUSION OF OCRELIZUMAB 600 MG FOR S
     Route: 042
     Dates: start: 20120109
  6. BENADRYL [Concomitant]
     Active Substance: DIPHENHYDRAMINE HYDROCHLORIDE
     Dosage: SUBSEQUENT DOSES RECEIVED ON 23/JAN/2012, 05/JUL/2012, 19/JUL/2012, 03/JAN/2013, 27/MAY/2013, 10/JUN
     Dates: start: 20120109
  7. FUROSEMIDE. [Concomitant]
     Active Substance: FUROSEMIDE
     Indication: PERIPHERAL SWELLING
  8. OCRELIZUMAB. [Suspect]
     Active Substance: OCRELIZUMAB
     Indication: PRIMARY PROGRESSIVE MULTIPLE SCLEROSIS
     Dosage: TWO IV INFUSIONS OF OCRELIZUMAB 300 MG (260ML) FOR CYCLE 1 AND SINGLE IV INFUSION OF OCRELIZUMAB 600
     Route: 042
     Dates: start: 20160302
  9. FUROSEMIDE. [Concomitant]
     Active Substance: FUROSEMIDE
     Indication: JOINT SWELLING
     Dates: start: 20170713
  10. MARVELON [Concomitant]
     Active Substance: DESOGESTREL\ETHINYL ESTRADIOL
     Indication: ANAEMIA
     Dates: start: 20160127
  11. MIRABEGRON [Concomitant]
     Active Substance: MIRABEGRON
     Dates: start: 20170419, end: 20190225
  12. CENTRUM FORTE [Concomitant]
     Dates: start: 2010
  13. METHYLPREDNISOLONE. [Concomitant]
     Active Substance: METHYLPREDNISOLONE
     Dosage: SUBSEQUENT DOSES RECEIVED ON 23/JAN/2012, 05/JUL/2012, 19/JUL/2012, 03/JAN/2013, 27/MAY/2013, 10/JUN
     Dates: start: 20120109
  14. ISOVUE [Concomitant]
     Active Substance: IOPAMIDOL
     Dates: start: 20190710, end: 20190710
  15. NACL [Concomitant]
     Active Substance: SODIUM CHLORIDE
     Dates: start: 20190705, end: 20190705
  16. OCRELIZUMAB. [Suspect]
     Active Substance: OCRELIZUMAB
     Dosage: SUBSEQUENT DOSES RECEIVED ON 18/JUN/2018 (559ML), 06/DEC/2018 (559ML), 23/MAY/2019 (559ML), 04/NOV/2
     Route: 042
     Dates: start: 20180104
  17. ACETAMINOPHEN. [Concomitant]
     Active Substance: ACETAMINOPHEN
     Dates: start: 20150504

REACTIONS (2)
  - Urosepsis [Recovered/Resolved]
  - Urinary tract infection [Recovered/Resolved]

NARRATIVE: CASE EVENT DATE: 20190701
